FAERS Safety Report 16078959 (Version 2)
Quarter: 2019Q2

REPORT INFORMATION
  Report Type: Spontaneous
  Country: US (occurrence: US)
  Receive Date: 20190315
  Receipt Date: 20190412
  Transmission Date: 20190711
  Serious: Yes (Other)
  Sender: FDA-Public Use
  Company Number: US-ELI_LILLY_AND_COMPANY-US201902011111

PATIENT
  Sex: Male

DRUGS (7)
  1. TALTZ [Suspect]
     Active Substance: IXEKIZUMAB
     Indication: PRODUCT USED FOR UNKNOWN INDICATION
     Dosage: UNK UNK, UNKNOWN
     Route: 065
     Dates: start: 20180102, end: 20190207
  2. ENBREL [Concomitant]
     Active Substance: ETANERCEPT
     Indication: SKIN DISORDER PROPHYLAXIS
  3. OTEZLA [Concomitant]
     Active Substance: APREMILAST
     Indication: SKIN DISORDER PROPHYLAXIS
  4. STELARA [Concomitant]
     Active Substance: USTEKINUMAB
     Indication: SKIN DISORDER PROPHYLAXIS
  5. HUMIRA [Concomitant]
     Active Substance: ADALIMUMAB
     Indication: SKIN DISORDER PROPHYLAXIS
  6. COSENTYX [Concomitant]
     Active Substance: SECUKINUMAB
     Indication: SKIN DISORDER PROPHYLAXIS
  7. METHOTREXATE. [Concomitant]
     Active Substance: METHOTREXATE
     Indication: SKIN DISORDER PROPHYLAXIS

REACTIONS (4)
  - Diarrhoea [Unknown]
  - Haematochezia [Recovered/Resolved]
  - Abdominal pain upper [Recovered/Resolved]
  - Abdominal discomfort [Unknown]

NARRATIVE: CASE EVENT DATE: 201901
